FAERS Safety Report 20856040 (Version 1)
Quarter: 2022Q2

REPORT INFORMATION
  Report Type: Spontaneous
  Country: US (occurrence: None)
  Receive Date: 20220517
  Receipt Date: 20220517
  Transmission Date: 20220720
  Serious: Yes (Life-Threatening, Other)
  Sender: FDA-Public Use
  Company Number: None

PATIENT
  Age: 43 Year
  Sex: Male
  Weight: 94.8 kg

DRUGS (1)
  1. PHENYTOIN ER [Suspect]
     Active Substance: PHENYTOIN SODIUM
     Indication: Seizure
     Dosage: FREQUENCY : DAILY;?
     Route: 048
     Dates: start: 20081107

REACTIONS (1)
  - Seizure [None]

NARRATIVE: CASE EVENT DATE: 20160529
